FAERS Safety Report 12607371 (Version 1)
Quarter: 2016Q3

REPORT INFORMATION
  Report Type: Spontaneous
  Country: US (occurrence: US)
  Receive Date: 20160729
  Receipt Date: 20160729
  Transmission Date: 20161109
  Serious: No
  Sender: FDA-Public Use
  Company Number: US-PFIZER INC-2016336217

PATIENT
  Age: 87 Year
  Sex: Male
  Weight: 77.98 kg

DRUGS (1)
  1. ADVIL PM [Suspect]
     Active Substance: DIPHENHYDRAMINE CITRATE\IBUPROFEN
     Indication: SLEEP DISORDER
     Dosage: 2 CAPLETS, ONCE A DAY, AS NEEDED
     Route: 048

REACTIONS (3)
  - Drug effect incomplete [Unknown]
  - Pollakiuria [Unknown]
  - Product use issue [Unknown]
